FAERS Safety Report 14080584 (Version 1)
Quarter: 2017Q4

REPORT INFORMATION
  Report Type: Spontaneous
  Country: BR (occurrence: BR)
  Receive Date: 20171012
  Receipt Date: 20171012
  Transmission Date: 20180321
  Serious: Yes (Other)
  Sender: FDA-Public Use
  Company Number: PHHY2017BR142577

PATIENT
  Sex: Female
  Weight: 92 kg

DRUGS (1)
  1. DESOGESTREL [Suspect]
     Active Substance: DESOGESTREL
     Indication: HAEMOSTASIS
     Dosage: 1 DF, QD
     Route: 048
     Dates: start: 201101

REACTIONS (4)
  - Haemorrhage [Recovered/Resolved]
  - Menstrual disorder [Recovered/Resolved]
  - Muscle spasms [Recovered/Resolved]
  - Off label use [Unknown]
